FAERS Safety Report 6608681-9 (Version None)
Quarter: 2010Q1

REPORT INFORMATION
  Report Type: 
  Country: None (occurrence: None)
  Receive Date: 20100224
  Receipt Date: 20100224
  Transmission Date: 20100710
  Serious: No
  Sender: FDA-Public Use
  Company Number: None

PATIENT
  Age: 14 Year
  Sex: Male
  Weight: 79.3795 kg

DRUGS (6)
  1. HALOPERIDOL [Suspect]
     Dosage: 5MG PRN PO
     Route: 048
  2. FLUOXETINE [Concomitant]
  3. CONCERTA [Concomitant]
  4. CLONIDINE [Concomitant]
  5. DIPHENHYDRAMINE HCL [Concomitant]
  6. ACETAMINOPHEN [Concomitant]

REACTIONS (2)
  - DROOLING [None]
  - EXTRAPYRAMIDAL DISORDER [None]
